FAERS Safety Report 15713053 (Version 1)
Quarter: 2018Q4

REPORT INFORMATION
  Report Type: Spontaneous
  Country: CH (occurrence: CH)
  Receive Date: 20181212
  Receipt Date: 20181212
  Transmission Date: 20190205
  Serious: Yes (Other)
  Sender: FDA-Public Use
  Company Number: CH-PURDUE PHARMA-GBR-2018-0062267

PATIENT
  Age: 44 Year
  Sex: Male

DRUGS (29)
  1. SEVREDOL [Suspect]
     Active Substance: MORPHINE
     Dosage: 10 MG, Q4H
     Route: 048
     Dates: start: 20181118
  2. CEFEPIME [Concomitant]
     Active Substance: CEFEPIME HYDROCHLORIDE
  3. ASPIRIN CARDIO [Concomitant]
     Active Substance: ASPIRIN
  4. LAXOBERON [Concomitant]
     Active Substance: SODIUM PICOSULFATE
     Dosage: AS NECESSARY
  5. IRFEN [Concomitant]
     Active Substance: IBUPROFEN
  6. TEMESTA                            /00273201/ [Concomitant]
     Active Substance: LORAZEPAM
  7. MOVICOL [Concomitant]
     Active Substance: POLYETHYLENE GLYCOL 3350\POTASSIUM CHLORIDE\SODIUM BICARBONATE\SODIUM CHLORIDE
     Dosage: AS NECESSARY
  8. FENTANYL. [Concomitant]
     Active Substance: FENTANYL
     Dosage: 50 MCG, UNK
     Route: 042
     Dates: start: 20181031, end: 20181031
  9. SEVREDOL [Suspect]
     Active Substance: MORPHINE
     Dosage: 25 MG, Q4H
     Route: 048
     Dates: start: 20181109, end: 20181110
  10. URISPAS [Concomitant]
     Active Substance: FLAVOXATE HYDROCHLORIDE
     Dosage: AS NECESSARY
  11. SODIUM PHOSPHATE [Concomitant]
     Active Substance: SODIUM PHOSPHATE
     Dosage: AS NECESSARY
  12. DETRUSITOL [Concomitant]
     Active Substance: TOLTERODINE TARTRATE
     Dosage: AS NECESSARY
  13. SEVREDOL [Suspect]
     Active Substance: MORPHINE
     Indication: PRODUCT USED FOR UNKNOWN INDICATION
     Dosage: 5 MG, TID (MAX; AS NEEDED)
     Route: 048
  14. CATAPRESAN                         /00171101/ [Suspect]
     Active Substance: CLONIDINE
     Indication: PRODUCT USED FOR UNKNOWN INDICATION
     Dosage: 25 MCG, BID
     Route: 048
     Dates: start: 20181123
  15. CATAPRESAN                         /00171101/ [Suspect]
     Active Substance: CLONIDINE
     Dosage: 50 MCG, BID
     Route: 048
     Dates: start: 20181122
  16. CATAPRESAN                         /00171101/ [Suspect]
     Active Substance: CLONIDINE
     Dosage: 75 MCG, BID
     Route: 048
     Dates: start: 20181115, end: 201811
  17. DISTRANEURIN                       /00027501/ [Concomitant]
     Active Substance: CLOMETHIAZOLE
     Dosage: AS NECESSARY
  18. DROPERIDOL. [Concomitant]
     Active Substance: DROPERIDOL
     Dosage: AS NECESSARY
  19. ONDANSETRON [Concomitant]
     Active Substance: ONDANSETRON
     Dosage: AS NECESSARY
  20. MORPHINE                           /00036302/ [Suspect]
     Active Substance: MORPHINE
     Indication: PRODUCT USED FOR UNKNOWN INDICATION
     Dosage: 4 MG, UNK
     Route: 042
     Dates: start: 20181031, end: 20181031
  21. CLOPIDOGREL [Concomitant]
     Active Substance: CLOPIDOGREL BISULFATE
  22. DAFALGAN [Concomitant]
     Active Substance: ACETAMINOPHEN
  23. SEVREDOL [Suspect]
     Active Substance: MORPHINE
     Dosage: 20 MG, Q4H
     Route: 048
     Dates: start: 20181111, end: 20181114
  24. NEXIUM [Concomitant]
     Active Substance: ESOMEPRAZOLE MAGNESIUM
  25. HALDOL [Concomitant]
     Active Substance: HALOPERIDOL
  26. FENTANYL. [Concomitant]
     Active Substance: FENTANYL
     Dosage: (IV FENTANYL PUMP)
     Route: 042
     Dates: start: 20181103, end: 20181109
  27. CLEXANE [Concomitant]
     Active Substance: ENOXAPARIN SODIUM
  28. NICOTINELL [Concomitant]
     Active Substance: NICOTINE
  29. PURSANA [Concomitant]
     Active Substance: FIG FRUIT OIL\SORBITOL
     Dosage: AS NECESSARY

REACTIONS (7)
  - Delusion [Not Recovered/Not Resolved]
  - Suicidal ideation [Not Recovered/Not Resolved]
  - Depressed mood [Not Recovered/Not Resolved]
  - Flashback [Not Recovered/Not Resolved]
  - Anxiety [Not Recovered/Not Resolved]
  - Persecutory delusion [Not Recovered/Not Resolved]
  - Hallucinations, mixed [Not Recovered/Not Resolved]

NARRATIVE: CASE EVENT DATE: 201811
